FAERS Safety Report 10040052 (Version 2)
Quarter: 2014Q2

REPORT INFORMATION
  Report Type: Spontaneous
  Country: US (occurrence: US)
  Receive Date: 20140326
  Receipt Date: 20140616
  Transmission Date: 20141212
  Serious: Yes (Hospitalization)
  Sender: FDA-Public Use
  Company Number: US-GILEAD-2014-0097935

PATIENT
  Age: 42 Year
  Sex: Female

DRUGS (4)
  1. LETAIRIS [Suspect]
     Indication: PULMONARY HYPERTENSION
     Dosage: 5 MG, QD
     Route: 065
     Dates: start: 20121026
  2. LETAIRIS [Suspect]
     Indication: SYSTEMIC SCLEROSIS
  3. ADCIRCA [Suspect]
     Indication: PULMONARY HYPERTENSION
     Dosage: 40 MG, QD
     Route: 065
  4. TYVASO [Suspect]
     Indication: PULMONARY HYPERTENSION
     Dosage: 0.6 ?G, QID
     Route: 065

REACTIONS (1)
  - Dyspnoea [Recovered/Resolved]
